FAERS Safety Report 23892347 (Version 1)
Quarter: 2024Q2

REPORT INFORMATION
  Report Type: Spontaneous
  Country: HU (occurrence: HU)
  Receive Date: 20240524
  Receipt Date: 20240524
  Transmission Date: 20240716
  Serious: Yes (Hospitalization)
  Sender: FDA-Public Use
  Company Number: HU-BoehringerIngelheim-2024-BI-028993

PATIENT
  Age: 47 Year
  Sex: Male

DRUGS (4)
  1. EMPAGLIFLOZIN [Suspect]
     Active Substance: EMPAGLIFLOZIN
     Indication: Heart failure with reduced ejection fraction
  2. SACUBITRIL\VALSARTAN [Concomitant]
     Active Substance: SACUBITRIL\VALSARTAN
     Indication: Heart failure with reduced ejection fraction
     Dosage: 97/103 MICROGRAM
  3. EPLERENONE [Concomitant]
     Active Substance: EPLERENONE
     Indication: Heart failure with reduced ejection fraction
  4. BISOPROLOL [Concomitant]
     Active Substance: BISOPROLOL\BISOPROLOL FUMARATE
     Indication: Product used for unknown indication

REACTIONS (1)
  - Drug ineffective [Recovering/Resolving]
